FAERS Safety Report 9171390 (Version 6)
Quarter: 2013Q4

REPORT INFORMATION
  Report Type: Spontaneous
  Country: JP (occurrence: JP)
  Receive Date: 20130319
  Receipt Date: 20131104
  Transmission Date: 20140711
  Serious: Yes (Death, Life-Threatening, Other)
  Sender: FDA-Public Use
  Company Number: JP-ELI_LILLY_AND_COMPANY-JP201303004554

PATIENT
  Age: 79 Year
  Sex: Male
  Weight: 41 kg

DRUGS (18)
  1. GEMZAR [Suspect]
     Indication: PANCREATIC CARCINOMA STAGE IV
     Dosage: 1000 MG/M2, OTHER
     Route: 042
     Dates: start: 20110908, end: 20111006
  2. ERLOTINIB [Concomitant]
     Indication: PANCREATIC CARCINOMA STAGE IV
     Dosage: 100 MG, QD
     Route: 048
     Dates: start: 20110908, end: 20111101
  3. CASODEX [Concomitant]
     Dosage: UNK
     Route: 048
     Dates: start: 200512, end: 20111031
  4. LEUPLIN [Concomitant]
     Dosage: 11.25 MG, OTHER
     Route: 058
     Dates: start: 200512, end: 20111031
  5. DIOVAN [Concomitant]
     Dosage: UNK
     Route: 048
     Dates: start: 20111104, end: 20111119
  6. PROMAC                                  /JPN/ [Concomitant]
     Dosage: UNK
     Route: 048
     Dates: start: 20110926, end: 20111119
  7. P GUARD [Concomitant]
     Indication: PANCREATIC CARCINOMA STAGE IV
     Dosage: UNK
     Route: 048
     Dates: start: 20111102, end: 20111103
  8. PARIET                                  /JPN/ [Concomitant]
     Indication: PROPHYLAXIS
     Dosage: UNK
     Route: 048
     Dates: start: 20111005
  9. MAGMITT [Concomitant]
     Indication: PROPHYLAXIS
     Dosage: UNK
     Route: 048
     Dates: start: 20111102, end: 20121109
  10. NOVAMIN [Concomitant]
     Dosage: UNK
     Route: 048
     Dates: start: 20111102, end: 20111119
  11. OPSO [Concomitant]
     Indication: PANCREATIC CARCINOMA STAGE IV
     Dosage: 5 MG, SINGLE
     Route: 048
     Dates: start: 20111103, end: 20111103
  12. FENTANYL CITRATE [Concomitant]
     Indication: PANCREATIC CARCINOMA STAGE IV
     Dosage: UNK
     Route: 007
     Dates: start: 20111104, end: 20111119
  13. OXINORM [Concomitant]
     Indication: PANCREATIC CARCINOMA STAGE IV
     Dosage: UNK
     Route: 048
     Dates: start: 20111104, end: 20111119
  14. CERCINE [Concomitant]
     Indication: PANCREATIC CARCINOMA STAGE IV
     Dosage: UNK
     Route: 048
     Dates: start: 20111104, end: 20111109
  15. BAKTAR [Concomitant]
     Indication: PROPHYLAXIS
     Dosage: UNK
     Route: 048
     Dates: start: 20111110, end: 20111119
  16. DEPAS [Concomitant]
     Indication: PROPHYLAXIS
     Dosage: UNK
     Route: 048
     Dates: start: 20111112, end: 20111119
  17. RISPERDAL [Concomitant]
     Indication: PROPHYLAXIS
     Dosage: UNK
     Route: 048
     Dates: start: 20111112, end: 20111119
  18. FUNGIZONE [Concomitant]
     Indication: PROPHYLAXIS
     Dosage: UNK
     Route: 048
     Dates: start: 20111116, end: 20111119

REACTIONS (14)
  - Sepsis [Fatal]
  - Renal failure [Fatal]
  - Cardiac failure [Fatal]
  - Disseminated intravascular coagulation [Not Recovered/Not Resolved]
  - Interstitial lung disease [Recovering/Resolving]
  - Acute respiratory distress syndrome [Not Recovered/Not Resolved]
  - Malignant neoplasm progression [Not Recovered/Not Resolved]
  - Dysgeusia [Not Recovered/Not Resolved]
  - Constipation [Not Recovered/Not Resolved]
  - Dermatitis acneiform [Recovered/Resolved]
  - Anaemia [Not Recovered/Not Resolved]
  - Decreased appetite [Not Recovered/Not Resolved]
  - Malaise [Not Recovered/Not Resolved]
  - Cheilitis [Recovered/Resolved]
